FAERS Safety Report 4391538-4 (Version None)
Quarter: 2004Q3

REPORT INFORMATION
  Report Type: 
  Country: None (occurrence: None)
  Receive Date: 20040702
  Receipt Date: 20040310
  Transmission Date: 20050211
  Serious: No
  Sender: FDA-Public Use
  Company Number: 2004UW03766

PATIENT
  Age: 47 Year
  Sex: Male
  Weight: 104.7809 kg

DRUGS (7)
  1. CRESTOR [Suspect]
     Indication: CORONARY ARTERY DISEASE
     Dosage: 10 MG DAILY PO
     Route: 048
     Dates: start: 20040123, end: 20040123
  2. CRESTOR [Suspect]
     Indication: LIPIDS INCREASED
     Dosage: 10 MG DAILY PO
     Route: 048
     Dates: start: 20040123, end: 20040123
  3. ASPIRIN [Concomitant]
  4. PLAVIX [Concomitant]
  5. TOPROL-XL [Concomitant]
  6. PAXIL [Concomitant]
  7. UNSPECIFIED NARCOTICS [Concomitant]

REACTIONS (1)
  - ANGIONEUROTIC OEDEMA [None]
